FAERS Safety Report 14228011 (Version 1)
Quarter: 2017Q4

REPORT INFORMATION
  Report Type: Spontaneous
  Country: KR (occurrence: KR)
  Receive Date: 20171127
  Receipt Date: 20171127
  Transmission Date: 20180321
  Serious: Yes (Other)
  Sender: FDA-Public Use
  Company Number: KR-IMPAX LABORATORIES, INC-2017-IPXL-03254

PATIENT
  Age: 32 Year
  Sex: Female

DRUGS (7)
  1. HYDROXYZINE PAMOATE IR [Suspect]
     Active Substance: HYDROXYZINE PAMOATE
     Indication: LIVEDO RETICULARIS
     Dosage: UNK
     Route: 065
  2. PENTOXIFYLLINE ER [Suspect]
     Active Substance: PENTOXIFYLLINE
     Indication: PRODUCT USE IN UNAPPROVED INDICATION
  3. COLCHICINE. [Suspect]
     Active Substance: COLCHICINE
     Indication: LIVEDO RETICULARIS
     Dosage: 0.6 MG, DAILY
     Route: 065
  4. PENTOXIFYLLINE ER [Suspect]
     Active Substance: PENTOXIFYLLINE
     Indication: LIVEDO RETICULARIS
     Dosage: UNK
     Route: 065
  5. METHYLPREDNISOLONE. [Suspect]
     Active Substance: METHYLPREDNISOLONE
     Indication: LIVEDO RETICULARIS
     Dosage: 4-8 MG, DAILY
     Route: 065
  6. HYDROXYZINE PAMOATE IR [Suspect]
     Active Substance: HYDROXYZINE PAMOATE
     Indication: PRODUCT USE IN UNAPPROVED INDICATION
  7. MUPIROCIN. [Suspect]
     Active Substance: MUPIROCIN
     Indication: LIVEDO RETICULARIS
     Dosage: UNK, OINTMENT
     Route: 065

REACTIONS (2)
  - Product use in unapproved indication [Unknown]
  - Sneddon^s syndrome [Recovering/Resolving]
